FAERS Safety Report 4403530-1 (Version None)
Quarter: 2004Q3

REPORT INFORMATION
  Report Type: 
  Country: None (occurrence: None)
  Receive Date: 20040715
  Receipt Date: 20040706
  Transmission Date: 20050211
  Serious: Yes (Hospitalization)
  Sender: FDA-Public Use
  Company Number: US-JNJFOC-20040403434

PATIENT
  Age: 75 Year
  Sex: Male
  Weight: 107.0489 kg

DRUGS (7)
  1. DURAGESIC [Suspect]
     Indication: CANCER PAIN
     Dosage: 25 UG/HR, TRANSDERMAL
     Route: 062
     Dates: start: 20040413, end: 20040414
  2. ZOCOR [Concomitant]
  3. HYDROCHLOROTHIAZIDE [Concomitant]
  4. DONEPEZIL HCL [Concomitant]
  5. ALBUTEROL MDI (SALBUTAMOL) [Concomitant]
  6. PREVACID [Concomitant]
  7. OLANZAPINE [Concomitant]

REACTIONS (13)
  - BLOOD URINE PRESENT [None]
  - CONFUSIONAL STATE [None]
  - DELIRIUM [None]
  - HAEMATOCRIT DECREASED [None]
  - HYPERCAPNIA [None]
  - HYPOXIA [None]
  - LOSS OF CONSCIOUSNESS [None]
  - OVERDOSE [None]
  - PULMONARY CONGESTION [None]
  - RESPIRATORY ACIDOSIS [None]
  - RESPIRATORY FAILURE [None]
  - SEPSIS [None]
  - URINARY TRACT INFECTION [None]
